FAERS Safety Report 19123729 (Version 1)
Quarter: 2021Q2

REPORT INFORMATION
  Report Type: Report from Study
  Country: EG (occurrence: EG)
  Receive Date: 20210412
  Receipt Date: 20210412
  Transmission Date: 20210717
  Serious: Yes (Other)
  Sender: FDA-Public Use
  Company Number: NVSC2021EG077559

PATIENT
  Age: 49 Year
  Sex: Male

DRUGS (5)
  1. GLIVEC [Suspect]
     Active Substance: IMATINIB MESYLATE
     Indication: CHRONIC MYELOID LEUKAEMIA
     Dosage: 400 MG, QD (STARTED 5 YEARS AGO, STOPPED 3 YEARS AGO)
     Route: 065
  2. GLIVEC [Suspect]
     Active Substance: IMATINIB MESYLATE
     Dosage: 500 MG, QD ( STOPPED 3 YEARS AGO)
     Route: 065
  3. TASIGNA [Suspect]
     Active Substance: NILOTINIB
     Indication: CHRONIC MYELOID LEUKAEMIA
     Dosage: 800 MG, QD (STARTED 3 YEARS AGO)
     Route: 065
     Dates: end: 20210323
  4. TASIGNA [Suspect]
     Active Substance: NILOTINIB
     Dosage: UNK (STOPPED SINCE 3 YEARS FOR A MONTH)
     Route: 065
     Dates: start: 202002
  5. ULCETECH [Concomitant]
     Indication: PRODUCT USED FOR UNKNOWN INDICATION
     Dosage: 1 DF, QD (STARTED 1 YEAR AGO)
     Route: 065

REACTIONS (10)
  - Rash [Recovered/Resolved]
  - Anaemia [Recovered/Resolved]
  - Weight decreased [Not Recovered/Not Resolved]
  - Post procedural infection [Recovered/Resolved]
  - Product availability issue [Not Recovered/Not Resolved]
  - Immunodeficiency [Recovered/Resolved]
  - Neutropenia [Recovered/Resolved]
  - Oedema peripheral [Recovered/Resolved]
  - Thrombocytopenia [Recovered/Resolved]
  - Polymerase chain reaction positive [Recovered/Resolved]

NARRATIVE: CASE EVENT DATE: 20210323
